FAERS Safety Report 12664607 (Version 2)
Quarter: 2016Q3

REPORT INFORMATION
  Report Type: Spontaneous
  Country: SK (occurrence: SK)
  Receive Date: 20160818
  Receipt Date: 20160830
  Transmission Date: 20161109
  Serious: Yes (Hospitalization)
  Sender: FDA-Public Use
  Company Number: SK-NORTHSTAR HEALTHCARE HOLDINGS-SK-2016NSR001828

PATIENT
  Age: 56 Year
  Sex: Female

DRUGS (3)
  1. LEVOTYROXIN NYCOMED [Concomitant]
     Indication: HYPOTHYROIDISM
     Dosage: UNK
  2. ALLOPURINOL. [Suspect]
     Active Substance: ALLOPURINOL
     Indication: BLOOD URIC ACID INCREASED
     Dosage: 300 MG, DAILY
  3. DICLOFENAC [Suspect]
     Active Substance: DICLOFENAC
     Indication: SPINAL PAIN
     Dosage: UNK

REACTIONS (14)
  - Rash macular [Recovered/Resolved]
  - Skin exfoliation [Recovering/Resolving]
  - Lymphadenopathy [Recovering/Resolving]
  - Eosinophilia [Recovered/Resolved]
  - Hepatic function abnormal [Recovering/Resolving]
  - Leukocytosis [Recovered/Resolved]
  - Lymphopenia [Recovered/Resolved]
  - Pyrexia [Recovered/Resolved]
  - Petechiae [Recovering/Resolving]
  - Jaundice [Recovering/Resolving]
  - Drug reaction with eosinophilia and systemic symptoms [Recovering/Resolving]
  - Drug-induced liver injury [Recovering/Resolving]
  - Asthenia [Recovering/Resolving]
  - Rash [Recovered/Resolved]
